FAERS Safety Report 6808204-5 (Version None)
Quarter: 2010Q2

REPORT INFORMATION
  Report Type: 
  Country: None (occurrence: None)
  Receive Date: 20100629
  Receipt Date: 20090422
  Transmission Date: 20101027
  Serious: No
  Sender: FDA-Public Use
  Company Number: US-PFIZER INC-2009204742

PATIENT
  Sex: Female
  Weight: 44.5 kg

DRUGS (5)
  1. ALPRAZOLAM [Suspect]
     Indication: ANXIETY
     Dosage: 0.25 MG, 2X/DAY
     Route: 048
     Dates: start: 20090330
  2. LYRICA [Suspect]
     Dosage: 50 MG, 1X/DAY
     Route: 048
     Dates: start: 20090421, end: 20090421
  3. AMBIEN [Concomitant]
     Indication: SLEEP DISORDER
     Dosage: 5 MG, AS NEEDED
  4. TYLENOL [Concomitant]
     Dosage: UNK
  5. ACETYLSALICYLIC ACID [Concomitant]
     Dosage: 325 MG, 1X/DAY

REACTIONS (3)
  - ABDOMINAL PAIN UPPER [None]
  - COELIAC DISEASE [None]
  - HANGOVER [None]
